FAERS Safety Report 21336314 (Version 1)
Quarter: 2022Q3

REPORT INFORMATION
  Report Type: Spontaneous
  Country: US (occurrence: None)
  Receive Date: 20220914
  Receipt Date: 20220914
  Transmission Date: 20221026
  Serious: Yes (Hospitalization)
  Sender: FDA-Public Use
  Company Number: None

PATIENT
  Sex: Female

DRUGS (1)
  1. COPAXONE [Suspect]
     Active Substance: GLATIRAMER ACETATE
     Indication: Multiple sclerosis
     Dosage: FREQUENCY : 3 TIMES A WEEK;?
     Route: 058
     Dates: start: 20140122

REACTIONS (8)
  - Fall [None]
  - Memory impairment [None]
  - Confusional state [None]
  - Urinary tract infection [None]
  - Coronavirus infection [None]
  - Asthenia [None]
  - Nasopharyngitis [None]
  - Sinusitis [None]
